FAERS Safety Report 19198450 (Version 2)
Quarter: 2021Q2

REPORT INFORMATION
  Report Type: Spontaneous
  Country: TR (occurrence: TR)
  Receive Date: 20210430
  Receipt Date: 20210512
  Transmission Date: 20210717
  Serious: Yes (Hospitalization, Other)
  Sender: FDA-Public Use
  Company Number: TR-MACLEODS PHARMACEUTICALS US LTD-MAC2021030989

PATIENT

DRUGS (3)
  1. PANTOPRAZOLE [Suspect]
     Active Substance: PANTOPRAZOLE
     Indication: PEPTIC ULCER
     Dosage: UNK, INTERMITTENTLY
     Route: 065
  2. TELMISARTAN/HYDROCHLOROTHIAZIDE [Concomitant]
     Active Substance: HYDROCHLOROTHIAZIDE\TELMISARTAN
     Indication: HYPERTENSION
     Dosage: UNK
     Route: 065
  3. NEBIVOLOL. [Concomitant]
     Active Substance: NEBIVOLOL
     Indication: HYPERTENSION
     Dosage: 5 MILLIGRAM
     Route: 065

REACTIONS (9)
  - Acute kidney injury [Recovering/Resolving]
  - Tachypnoea [Unknown]
  - Hypervolaemia [Recovering/Resolving]
  - Dyspnoea [Unknown]
  - Pleural effusion [Unknown]
  - Glomerulosclerosis [Recovering/Resolving]
  - Tubulointerstitial nephritis [Recovering/Resolving]
  - Granuloma [Recovering/Resolving]
  - Normochromic normocytic anaemia [Unknown]
